FAERS Safety Report 14497702 (Version 2)
Quarter: 2018Q1

REPORT INFORMATION
  Report Type: Spontaneous
  Country: US (occurrence: US)
  Receive Date: 20180207
  Receipt Date: 20180319
  Transmission Date: 20180509
  Serious: No
  Sender: FDA-Public Use
  Company Number: PHEH2018US004833

PATIENT
  Age: 36 Year
  Sex: Female
  Weight: 106.58 kg

DRUGS (1)
  1. COSENTYX [Suspect]
     Active Substance: SECUKINUMAB
     Indication: PSORIASIS
     Dosage: 300 MG, UNK
     Route: 058
     Dates: start: 20170509

REACTIONS (3)
  - Furuncle [Recovered/Resolved]
  - Alopecia areata [Recovering/Resolving]
  - Psoriasis [Unknown]
